FAERS Safety Report 23327376 (Version 1)
Quarter: 2023Q4

REPORT INFORMATION
  Report Type: Spontaneous
  Country: US (occurrence: US)
  Receive Date: 20231221
  Receipt Date: 20231221
  Transmission Date: 20240109
  Serious: Yes (Disabling, Other)
  Sender: FDA-Public Use
  Company Number: US-REGENERON PHARMACEUTICALS, INC.-2023-153081

PATIENT
  Sex: Male

DRUGS (4)
  1. EYLEA [Suspect]
     Active Substance: AFLIBERCEPT
     Indication: Product used for unknown indication
     Dosage: UNK, RIGHT EYE; FORMULATION: PRE-FILLED SYRINGE
     Route: 031
     Dates: start: 2021
  2. EYLEA [Suspect]
     Active Substance: AFLIBERCEPT
     Dosage: 2 MG, Q8W,  RIGHT EYE FORMULATION: PRE-FILLED SYRINGE (UNKNOWN)
     Route: 031
  3. EYLEA [Suspect]
     Active Substance: AFLIBERCEPT
     Dosage: 2 MG, EVERY 11 WEEKS, RIGHT EYE FORMULATION: PRE-FILLED SYRINGE (UNKNOWN)
     Route: 031
  4. EYLEA [Suspect]
     Active Substance: AFLIBERCEPT
     Dosage: 2 MG, Q8W,  RIGHT EYE, FORMULATION: PRE-FILLED SYRINGE (UNKNOWN)
     Route: 031

REACTIONS (2)
  - Blindness unilateral [Unknown]
  - Eye inflammation [Unknown]
